FAERS Safety Report 8187251-8 (Version None)
Quarter: 2012Q1

REPORT INFORMATION
  Report Type: 
  Country: None (occurrence: None)
  Receive Date: 20120306
  Receipt Date: 20120223
  Transmission Date: 20120608
  Serious: Yes (Other)
  Sender: FDA-Public Use
  Company Number: FR-JNJFOC-20120207839

PATIENT
  Sex: Female

DRUGS (1)
  1. STELARA [Suspect]
     Indication: PSORIASIS
     Route: 058
     Dates: start: 20111222, end: 20111222

REACTIONS (5)
  - ARTHRITIS [None]
  - MUSCULOSKELETAL PAIN [None]
  - CRYOGLOBULINAEMIA [None]
  - ERYTHEMA [None]
  - INFLUENZA LIKE ILLNESS [None]
